FAERS Safety Report 6657417-4 (Version None)
Quarter: 2010Q1

REPORT INFORMATION
  Report Type: 
  Country: None (occurrence: None)
  Receive Date: 20100330
  Receipt Date: 20100318
  Transmission Date: 20100710
  Serious: Yes (Other)
  Sender: FDA-Public Use
  Company Number: JP-PFIZER INC-2010036228

PATIENT
  Age: 89 Year
  Sex: Female

DRUGS (1)
  1. DIFLUCAN [Suspect]
     Indication: INFECTION PROPHYLAXIS
     Dosage: 200 MG, 1X/DAY
     Route: 048
     Dates: start: 20100101

REACTIONS (3)
  - BUCCAL MUCOSAL ROUGHENING [None]
  - DERMATITIS [None]
  - HYPERTENSION [None]
